FAERS Safety Report 5957899-7 (Version None)
Quarter: 2008Q4

REPORT INFORMATION
  Report Type: 
  Country: None (occurrence: None)
  Receive Date: 20081119
  Receipt Date: 20081113
  Transmission Date: 20090506
  Serious: Yes (Other)
  Sender: FDA-Public Use
  Company Number: US-BAYER-200834463NA

PATIENT
  Sex: Female

DRUGS (1)
  1. CIPRO XR [Suspect]
     Indication: URINARY TRACT INFECTION
     Dosage: UNIT DOSE: 500 MG
     Route: 048
     Dates: start: 20080906, end: 20080908

REACTIONS (1)
  - TENDONITIS [None]
